FAERS Safety Report 9885245 (Version 1)
Quarter: 2014Q1

REPORT INFORMATION
  Report Type: Spontaneous
  Country: US (occurrence: US)
  Receive Date: 20140210
  Receipt Date: 20140210
  Transmission Date: 20141002
  Serious: No
  Sender: FDA-Public Use
  Company Number: US-PFIZER INC-2014035208

PATIENT
  Age: 50 Year
  Sex: Female
  Weight: 102.04 kg

DRUGS (3)
  1. PRISTIQ [Suspect]
     Indication: ANXIETY
     Dosage: 50 MG, UNK
     Route: 048
     Dates: end: 201401
  2. PRISTIQ [Suspect]
     Indication: DEPRESSION
  3. METFORMIN [Concomitant]
     Indication: DIABETES MELLITUS
     Dosage: UNK

REACTIONS (2)
  - Abdominal discomfort [Unknown]
  - Malaise [Unknown]
